FAERS Safety Report 12984772 (Version 3)
Quarter: 2017Q1

REPORT INFORMATION
  Report Type: Spontaneous
  Country: GB (occurrence: GB)
  Receive Date: 20161129
  Receipt Date: 20170324
  Transmission Date: 20170428
  Serious: Yes (Death)
  Sender: FDA-Public Use
  Company Number: GB-SUNOVION-2016SUN002960

PATIENT

DRUGS (9)
  1. METHOTREXATE. [Concomitant]
     Active Substance: METHOTREXATE
     Dosage: UNK UNK, QW
     Dates: start: 201608
  2. HUMIRA [Concomitant]
     Active Substance: ADALIMUMAB
     Indication: PSORIASIS
     Dosage: UNK
     Dates: end: 2016
  3. EPILIM [Concomitant]
     Active Substance: VALPROATE SODIUM
     Route: 048
  4. ADALIMUMAB [Concomitant]
     Active Substance: ADALIMUMAB
     Dosage: WAS ON LONG TERM. WITHDRAWN, SWITCHED TO METHOTREXATE INJECTIONS.
     Dates: end: 2016
  5. LATUDA [Suspect]
     Active Substance: LURASIDONE HYDROCHLORIDE
     Indication: SCHIZOAFFECTIVE DISORDER
     Dosage: 74 MG, QD
     Route: 048
  6. METHOTREXATE. [Concomitant]
     Active Substance: METHOTREXATE
     Dosage: UNK
     Dates: start: 2016
  7. USTEKINUMAB [Concomitant]
     Active Substance: USTEKINUMAB
     Dosage: UNK
     Dates: start: 2016
  8. METHOTREXATE. [Concomitant]
     Active Substance: METHOTREXATE
     Indication: PSORIASIS
     Dosage: UNK
     Route: 048
     Dates: end: 201608
  9. EPILIM [Concomitant]
     Active Substance: VALPROATE SODIUM
     Indication: MOOD SWINGS
     Dosage: 400 MG, BID

REACTIONS (1)
  - Colitis ulcerative [Fatal]
